FAERS Safety Report 16004484 (Version 1)
Quarter: 2019Q1

REPORT INFORMATION
  Report Type: Spontaneous
  Country: US (occurrence: US)
  Receive Date: 20190226
  Receipt Date: 20190226
  Transmission Date: 20190418
  Serious: Yes (Death)
  Sender: FDA-Public Use
  Company Number: US-AXELLIA-002247

PATIENT
  Age: 78 Year
  Sex: Male
  Weight: 99.5 kg

DRUGS (2)
  1. FRESENIUS 1000 ML NORMAL SALINE [Concomitant]
  2. VANCOMYCIN [Suspect]
     Active Substance: VANCOMYCIN
     Indication: PYREXIA
     Dosage: 500 MG X 2 ONCE
     Route: 042
     Dates: start: 20190124

REACTIONS (2)
  - Death [Fatal]
  - Off label use [Unknown]
